FAERS Safety Report 13967658 (Version 1)
Quarter: 2017Q3

REPORT INFORMATION
  Report Type: Spontaneous
  Country: KR (occurrence: KR)
  Receive Date: 20170914
  Receipt Date: 20170914
  Transmission Date: 20171128
  Serious: Yes (Other)
  Sender: FDA-Public Use
  Company Number: KR-CONCORDIA PHARMACEUTICALS INC.-GSH201709-005226

PATIENT
  Sex: Male

DRUGS (1)
  1. ALFUZOSIN TABLET [Suspect]
     Active Substance: ALFUZOSIN
     Indication: BENIGN PROSTATIC HYPERPLASIA
     Route: 048
     Dates: start: 20170827, end: 20170827

REACTIONS (2)
  - Temporomandibular joint syndrome [Unknown]
  - Facial paralysis [Unknown]

NARRATIVE: CASE EVENT DATE: 2017
